FAERS Safety Report 10046838 (Version 1)
Quarter: 2014Q1

REPORT INFORMATION
  Report Type: Spontaneous
  Country: JP (occurrence: JP)
  Receive Date: 20140331
  Receipt Date: 20140331
  Transmission Date: 20141002
  Serious: Yes (Other)
  Sender: FDA-Public Use
  Company Number: JP-ELI_LILLY_AND_COMPANY-JP201403008278

PATIENT
  Age: 27 Year
  Sex: Male

DRUGS (4)
  1. ZYPREXA [Suspect]
     Indication: SCHIZOPHRENIA, CATATONIC TYPE
     Route: 048
  2. BROTIZOLAM [Concomitant]
  3. FLUNITRAZEPAM [Concomitant]
  4. BROMAZEPAM [Concomitant]

REACTIONS (2)
  - Catatonia [Unknown]
  - Neuroleptic malignant syndrome [Unknown]
